FAERS Safety Report 19953358 (Version 1)
Quarter: 2021Q4

REPORT INFORMATION
  Report Type: Spontaneous
  Country: US (occurrence: US)
  Receive Date: 20211014
  Receipt Date: 20211014
  Transmission Date: 20220303
  Serious: Yes (Other)
  Sender: FDA-Public Use
  Company Number: US-SA-SAC20211008000392

PATIENT
  Age: 68 Year
  Sex: Male

DRUGS (2)
  1. ZANTAC [Suspect]
     Active Substance: RANITIDINE HYDROCHLORIDE
     Indication: Dyspepsia
     Dosage: , FREQUENCY:  2 TIMES, A DAY OR MORE   150 MG
  2. ZANTAC [Suspect]
     Active Substance: RANITIDINE HYDROCHLORIDE
     Indication: Gastric ulcer

REACTIONS (1)
  - Neoplasm malignant [Unknown]

NARRATIVE: CASE EVENT DATE: 20080101
